FAERS Safety Report 9858076 (Version 2)
Quarter: 2014Q1

REPORT INFORMATION
  Report Type: Spontaneous
  Country: US (occurrence: US)
  Receive Date: 20140131
  Receipt Date: 20140311
  Transmission Date: 20141002
  Serious: No
  Sender: FDA-Public Use
  Company Number: US-PFIZER INC-2014027625

PATIENT
  Age: 89 Year
  Sex: Female

DRUGS (5)
  1. NORVASC [Suspect]
     Dosage: UNK
  2. LIPITOR [Suspect]
     Dosage: UNK
  3. PROTONIX [Suspect]
     Dosage: UNK
  4. ZOLOFT [Suspect]
     Dosage: UNK
  5. ZOLOFT [Suspect]
     Dosage: UNK

REACTIONS (1)
  - Pain [Unknown]
